FAERS Safety Report 9116533 (Version 1)
Quarter: 2013Q1

REPORT INFORMATION
  Report Type: Spontaneous
  Country: FR (occurrence: FR)
  Receive Date: 20130225
  Receipt Date: 20130225
  Transmission Date: 20140127
  Serious: Yes (Other)
  Sender: FDA-Public Use
  Company Number: FR-US-EMD SERONO, INC.-7194660

PATIENT
  Age: 33 Year
  Sex: Female

DRUGS (3)
  1. OVITRELLE [Suspect]
     Indication: ARTIFICIAL INSEMINATION BY PARTNER
     Route: 058
     Dates: start: 20100203
  2. SYNAREL [Suspect]
     Indication: ARTIFICIAL INSEMINATION BY PARTNER
     Route: 045
     Dates: start: 200912, end: 20100202
  3. PUREGON [Suspect]
     Indication: ARTIFICIAL INSEMINATION BY PARTNER
     Route: 058
     Dates: start: 20100125, end: 20100202

REACTIONS (1)
  - Erythema nodosum [Recovered/Resolved]
